FAERS Safety Report 7073229-4 (Version None)
Quarter: 2010Q4

REPORT INFORMATION
  Report Type: 
  Country: None (occurrence: None)
  Receive Date: 20101029
  Receipt Date: 20100713
  Transmission Date: 20110411
  Serious: No
  Sender: FDA-Public Use
  Company Number: A0859393A

PATIENT
  Age: 52 Year
  Sex: Male

DRUGS (7)
  1. ADVAIR DISKUS 100/50 [Suspect]
     Indication: ASTHMA
     Dosage: 1PUFF TWICE PER DAY
     Route: 055
     Dates: start: 20100428, end: 20100502
  2. ATENOLOL AND CHLORTHALIDONE [Concomitant]
  3. FEXOFENADINE HCL [Concomitant]
  4. KLOR-CON [Concomitant]
  5. LEVOTHYROXINE SODIUM [Concomitant]
  6. NASONEX [Concomitant]
  7. CENTRUM [Concomitant]

REACTIONS (3)
  - DRY MOUTH [None]
  - DYSGEUSIA [None]
  - PRODUCT QUALITY ISSUE [None]
